FAERS Safety Report 14353363 (Version 1)
Quarter: 2018Q1

REPORT INFORMATION
  Report Type: Report from Study
  Country: DE (occurrence: DE)
  Receive Date: 20180105
  Receipt Date: 20180105
  Transmission Date: 20180509
  Serious: Yes (Hospitalization, Other)
  Sender: FDA-Public Use
  Company Number: DE-CONCORDIA PHARMACEUTICALS INC.-E2B_00009310

PATIENT
  Sex: Female

DRUGS (16)
  1. RITUXIMAB. [Suspect]
     Active Substance: RITUXIMAB
     Route: 058
     Dates: start: 20170123
  2. METHOTREXATE. [Suspect]
     Active Substance: METHOTREXATE
     Indication: RHEUMATOID ARTHRITIS
     Route: 048
     Dates: start: 200903
  3. LISINOPRIL. [Concomitant]
     Active Substance: LISINOPRIL
  4. SOTALEX [Concomitant]
     Active Substance: SOTALOL
  5. BONVIVA [Concomitant]
     Active Substance: IBANDRONATE SODIUM
     Route: 065
  6. MARCUMAR [Concomitant]
     Active Substance: PHENPROCOUMON
  7. RITUXIMAB. [Suspect]
     Active Substance: RITUXIMAB
     Indication: RHEUMATOID ARTHRITIS
     Route: 058
     Dates: start: 201001
  8. RITUXIMAB. [Suspect]
     Active Substance: RITUXIMAB
     Route: 058
     Dates: start: 201009
  9. PREDNISOLONE. [Suspect]
     Active Substance: PREDNISOLONE
     Indication: RHEUMATOID ARTHRITIS
     Route: 065
     Dates: start: 1999
  10. RITUXIMAB. [Suspect]
     Active Substance: RITUXIMAB
     Route: 058
     Dates: start: 201106
  11. NOVODIGAL (.BETA.-ACETYLDIGOXIN) [Concomitant]
     Active Substance: .BETA.-ACETYLDIGOXIN
  12. JODID [Concomitant]
     Active Substance: IODINE
  13. BENDAMUSTINA [Concomitant]
     Active Substance: BENDAMUSTINE
  14. RITUXIMAB. [Suspect]
     Active Substance: RITUXIMAB
     Route: 058
     Dates: start: 20090311
  15. METHOTREXATE. [Suspect]
     Active Substance: METHOTREXATE
     Route: 048
  16. RITUXIMAB. [Suspect]
     Active Substance: RITUXIMAB
     Route: 058
     Dates: start: 201202

REACTIONS (3)
  - Respiratory tract infection [Recovered/Resolved]
  - Non-Hodgkin^s lymphoma recurrent [Unknown]
  - Non-Hodgkin^s lymphoma [Not Recovered/Not Resolved]

NARRATIVE: CASE EVENT DATE: 20110220
